FAERS Safety Report 4611530-1 (Version None)
Quarter: 2005Q2

REPORT INFORMATION
  Report Type: 
  Country: None (occurrence: None)
  Receive Date: 20050311
  Receipt Date: 20041110
  Transmission Date: 20051028
  Serious: No
  Sender: FDA-Public Use
  Company Number: 2004-BP-10865BP

PATIENT
  Age: 62 Year
  Sex: Male

DRUGS (6)
  1. SPIRIVA [Suspect]
     Indication: CHRONIC OBSTRUCTIVE PULMONARY DISEASE
     Dosage: 18 MCG (18 MCG), IH
     Route: 055
     Dates: start: 20041018, end: 20041028
  2. ALLEGRA D 24 HOUR [Concomitant]
  3. LIPITOR [Concomitant]
  4. COMBIVENT [Concomitant]
  5. ASPIRIN [Concomitant]
  6. AMBIEN [Concomitant]

REACTIONS (1)
  - COUGH [None]
